FAERS Safety Report 4680090-1 (Version None)
Quarter: 2005Q2

REPORT INFORMATION
  Report Type: 
  Country: None (occurrence: None)
  Receive Date: 20050531
  Receipt Date: 20050520
  Transmission Date: 20051028
  Serious: Yes (Other)
  Sender: FDA-Public Use
  Company Number: 141233USA

PATIENT
  Age: 41 Year
  Sex: Female

DRUGS (2)
  1. COPAXONE [Suspect]
     Indication: MULTIPLE SCLEROSIS
     Dosage: 200 MILLIGRAM QD SUBCUTANEOUS
     Route: 058
     Dates: start: 20040604
  2. SYNTHROID [Concomitant]

REACTIONS (6)
  - ERYTHEMA [None]
  - PAIN [None]
  - POST PROCEDURAL COMPLICATION [None]
  - SCAR [None]
  - SKIN NECROSIS [None]
  - WRONG TECHNIQUE IN DRUG USAGE PROCESS [None]
